FAERS Safety Report 18115162 (Version 1)
Quarter: 2020Q3

REPORT INFORMATION
  Report Type: Report from Study
  Country: US (occurrence: US)
  Receive Date: 20200805
  Receipt Date: 20200805
  Transmission Date: 20201103
  Serious: Yes (Hospitalization, Other)
  Sender: FDA-Public Use
  Company Number: US-ACTELION-A-US2020-207789

PATIENT
  Age: 72 Year
  Sex: Female

DRUGS (4)
  1. OPSUMIT [Suspect]
     Active Substance: MACITENTAN
     Indication: PULMONARY ARTERIAL HYPERTENSION
     Dosage: 10 MG, QD
     Route: 048
     Dates: start: 202005
  2. CLARITIN ALLERGIC [Concomitant]
     Active Substance: OXYMETAZOLINE HYDROCHLORIDE
     Indication: LACRIMATION INCREASED
  3. COUMADIN [Concomitant]
     Active Substance: WARFARIN SODIUM
  4. CLARITIN ALLERGIC [Concomitant]
     Active Substance: OXYMETAZOLINE HYDROCHLORIDE
     Indication: MULTIPLE ALLERGIES

REACTIONS (11)
  - Lumbar vertebral fracture [Recovering/Resolving]
  - International normalised ratio increased [Recovered/Resolved]
  - Stent placement [Recovering/Resolving]
  - Epistaxis [Recovered/Resolved]
  - Lacrimation increased [Not Recovered/Not Resolved]
  - Eye swelling [Not Recovered/Not Resolved]
  - Myocardial infarction [Recovering/Resolving]
  - Nasal congestion [Recovered/Resolved]
  - Dysphonia [Not Recovered/Not Resolved]
  - Fall [Recovered/Resolved]
  - Hospice care [Unknown]

NARRATIVE: CASE EVENT DATE: 202005
